FAERS Safety Report 4516830-1 (Version None)
Quarter: 2004Q4

REPORT INFORMATION
  Report Type: 
  Country: None (occurrence: None)
  Receive Date: 20041202
  Receipt Date: 20030630
  Transmission Date: 20050328
  Serious: Yes (Hospitalization)
  Sender: FDA-Public Use
  Company Number: FR-GLAXOSMITHKLINE-B0303532A

PATIENT
  Age: 56 Year
  Sex: Female

DRUGS (5)
  1. AVANDIA [Suspect]
     Indication: DIABETES MELLITUS NON-INSULIN-DEPENDENT
     Dosage: 4MG PER DAY
     Route: 048
     Dates: start: 20030424, end: 20030625
  2. METFORMIN HCL [Concomitant]
     Indication: DIABETES MELLITUS NON-INSULIN-DEPENDENT
  3. BISOPROLOL FUMARATE [Concomitant]
  4. FLECAINE [Concomitant]
  5. AMAREL [Concomitant]
     Dosage: 3MG PER DAY

REACTIONS (11)
  - ASCITES [None]
  - ASTHENIA [None]
  - HEADACHE [None]
  - HEPATIC FAILURE [None]
  - NAUSEA [None]
  - OEDEMA [None]
  - PARAESTHESIA [None]
  - TRANSAMINASES INCREASED [None]
  - VERTIGO [None]
  - WEIGHT FLUCTUATION [None]
  - WEIGHT INCREASED [None]
